FAERS Safety Report 25240138 (Version 7)
Quarter: 2025Q4

REPORT INFORMATION
  Report Type: Report from Study
  Country: CN (occurrence: CN)
  Receive Date: 20250425
  Receipt Date: 20251216
  Transmission Date: 20260119
  Serious: Yes (Other)
  Sender: ROCHE
  Company Number: CN-ROCHE-3572343

PATIENT
  Age: 74 Year
  Sex: Male
  Weight: 51 kg

DRUGS (78)
  1. POLATUZUMAB VEDOTIN [Suspect]
     Active Substance: POLATUZUMAB VEDOTIN
     Indication: Diffuse large B-cell lymphoma
     Dosage: FREQUENCY - ONCE
     Route: 041
     Dates: end: 20231227
  2. POLATUZUMAB VEDOTIN [Suspect]
     Active Substance: POLATUZUMAB VEDOTIN
     Dosage: FREQUENCY - ONCE
     Route: 041
     Dates: end: 20240324
  3. POLATUZUMAB VEDOTIN [Suspect]
     Active Substance: POLATUZUMAB VEDOTIN
     Dosage: FREQUENCY - ONCE
     Route: 041
     Dates: end: 20240125
  4. POLATUZUMAB VEDOTIN [Suspect]
     Active Substance: POLATUZUMAB VEDOTIN
     Dosage: FREQUENCY - ONCE
     Route: 041
     Dates: end: 20240218
  5. RITUXIMAB [Suspect]
     Active Substance: RITUXIMAB
     Indication: Diffuse large B-cell lymphoma
     Dosage: START DATE: 26-DEC-2023
     Route: 042
     Dates: start: 20231226, end: 20231226
  6. RITUXIMAB [Suspect]
     Active Substance: RITUXIMAB
     Dosage: START DATE: 28-DEC-2023
     Route: 041
     Dates: end: 20231228
  7. RITUXIMAB [Suspect]
     Active Substance: RITUXIMAB
     Dosage: START DATE: 23-MAR-2024
     Route: 041
     Dates: end: 20240323
  8. RITUXIMAB [Suspect]
     Active Substance: RITUXIMAB
     Dosage: START DATE: 24-JAN-2024
     Route: 041
     Dates: end: 20240124
  9. RITUXIMAB [Suspect]
     Active Substance: RITUXIMAB
     Dosage: START DATE: 17-FEB-2024
     Route: 041
     Dates: end: 20240217
  10. RITUXIMAB [Suspect]
     Active Substance: RITUXIMAB
     Dosage: START DATE: 26-DEC-2023
     Route: 041
     Dates: end: 20231226
  11. RITUXIMAB [Suspect]
     Active Substance: RITUXIMAB
     Dosage: START DATE: 27-DEC-2023
     Route: 041
     Dates: end: 20231227
  12. CYCLOPHOSPHAMIDE [Suspect]
     Active Substance: CYCLOPHOSPHAMIDE
     Indication: Diffuse large B-cell lymphoma
     Route: 041
     Dates: end: 20231227
  13. CYCLOPHOSPHAMIDE [Suspect]
     Active Substance: CYCLOPHOSPHAMIDE
     Route: 041
     Dates: end: 20240324
  14. CYCLOPHOSPHAMIDE [Suspect]
     Active Substance: CYCLOPHOSPHAMIDE
     Route: 041
     Dates: end: 20240125
  15. CYCLOPHOSPHAMIDE [Suspect]
     Active Substance: CYCLOPHOSPHAMIDE
     Route: 041
     Dates: end: 20240218
  16. DOXORUBICIN [Suspect]
     Active Substance: DOXORUBICIN
     Indication: Diffuse large B-cell lymphoma
     Route: 042
     Dates: end: 20240125
  17. DOXORUBICIN [Suspect]
     Active Substance: DOXORUBICIN
     Route: 042
     Dates: end: 20240217
  18. METHYLPREDNISOLONE [Suspect]
     Active Substance: METHYLPREDNISOLONE
     Indication: Diffuse large B-cell lymphoma
     Route: 041
     Dates: end: 20231229
  19. METHYLPREDNISOLONE [Suspect]
     Active Substance: METHYLPREDNISOLONE
     Route: 041
     Dates: end: 20240126
  20. PREDNISONE [Suspect]
     Active Substance: PREDNISONE
     Indication: Diffuse large B-cell lymphoma
     Route: 048
     Dates: end: 20231229
  21. PREDNISONE [Suspect]
     Active Substance: PREDNISONE
     Route: 048
     Dates: end: 20240324
  22. PREDNISONE [Suspect]
     Active Substance: PREDNISONE
     Route: 048
     Dates: end: 20240328
  23. PREDNISONE [Suspect]
     Active Substance: PREDNISONE
     Route: 048
     Dates: end: 20240223
  24. PREDNISONE [Suspect]
     Active Substance: PREDNISONE
     Route: 048
     Dates: end: 20240129
  25. PREDNISONE [Suspect]
     Active Substance: PREDNISONE
     Route: 048
     Dates: end: 20231226
  26. PREDNISONE [Suspect]
     Active Substance: PREDNISONE
     Route: 048
     Dates: end: 20240222
  27. EPIRUBICIN HYDROCHLORIDE [Suspect]
     Active Substance: EPIRUBICIN HYDROCHLORIDE
     Indication: Diffuse large B-cell lymphoma
     Route: 041
     Dates: end: 20240324
  28. EPIRUBICIN HYDROCHLORIDE [Suspect]
     Active Substance: EPIRUBICIN HYDROCHLORIDE
     Route: 041
     Dates: end: 20240328
  29. ZANUBRUTINIB [Suspect]
     Active Substance: ZANUBRUTINIB
     Indication: Diffuse large B-cell lymphoma
     Route: 048
     Dates: end: 20240328
  30. ENTECAVIR [Concomitant]
     Active Substance: ENTECAVIR
  31. Ricodrine [Concomitant]
     Route: 048
     Dates: start: 20231229
  32. ACETYLCYSTEINE [Concomitant]
     Active Substance: ACETYLCYSTEINE
  33. Tiotropium bromide inhaled powder mist [Concomitant]
  34. ISONIAZID [Concomitant]
     Active Substance: ISONIAZID
  35. ATORVASTATIN CALCIUM [Concomitant]
     Active Substance: ATORVASTATIN CALCIUM
  36. Olmesartan ester tablets [Concomitant]
  37. Insulin glargine injection [Concomitant]
  38. Potassium chloride sustained-release tablets [Concomitant]
  39. POTASSIUM CHLORIDE [Concomitant]
     Active Substance: POTASSIUM CHLORIDE
  40. METHYLPREDNISOLONE SODIUM SUCCINATE [Concomitant]
     Active Substance: METHYLPREDNISOLONE SODIUM SUCCINATE
  41. Promethazine injections [Concomitant]
  42. Omeprazole enteric-coated capsules [Concomitant]
  43. SODIUM BICARBONATE [Concomitant]
     Active Substance: SODIUM BICARBONATE
     Route: 041
     Dates: start: 20240122, end: 20240127
  44. Compound acetaminophen tablets [Concomitant]
  45. PROMETHAZINE [Concomitant]
     Active Substance: PROMETHAZINE HYDROCHLORIDE
  46. Pegylated recombinant human granulocytic stimulating factor inj [Concomitant]
  47. ASCORBIC ACID [Concomitant]
     Active Substance: ASCORBIC ACID
     Route: 041
     Dates: start: 20240322, end: 20240322
  48. Vitamin B6 inj [Concomitant]
     Route: 041
     Dates: start: 20240323, end: 20240323
  49. DEXAMETHASONE SODIUM PHOSPHATE [Concomitant]
     Active Substance: DEXAMETHASONE SODIUM PHOSPHATE
     Dates: start: 20240324, end: 20240324
  50. DEXAMETHASONE SODIUM PHOSPHATE [Concomitant]
     Active Substance: DEXAMETHASONE SODIUM PHOSPHATE
     Dates: start: 20240124, end: 20240124
  51. DEXAMETHASONE SODIUM PHOSPHATE [Concomitant]
     Active Substance: DEXAMETHASONE SODIUM PHOSPHATE
     Dates: start: 20240216, end: 20240216
  52. DEXAMETHASONE SODIUM PHOSPHATE [Concomitant]
     Active Substance: DEXAMETHASONE SODIUM PHOSPHATE
     Dates: start: 20240125, end: 20240125
  53. LIDOCAINE HYDROCHLORIDE [Concomitant]
     Active Substance: LIDOCAINE HYDROCHLORIDE
     Route: 058
     Dates: start: 20240324, end: 20240324
  54. LIDOCAINE HYDROCHLORIDE [Concomitant]
     Active Substance: LIDOCAINE HYDROCHLORIDE
     Route: 058
     Dates: start: 20231222, end: 20231222
  55. LIDOCAINE HYDROCHLORIDE [Concomitant]
     Active Substance: LIDOCAINE HYDROCHLORIDE
     Route: 058
     Dates: start: 20231225, end: 20231225
  56. LIDOCAINE HYDROCHLORIDE [Concomitant]
     Active Substance: LIDOCAINE HYDROCHLORIDE
     Route: 058
     Dates: start: 20240124, end: 20240124
  57. LIDOCAINE HYDROCHLORIDE [Concomitant]
     Active Substance: LIDOCAINE HYDROCHLORIDE
     Route: 058
     Dates: start: 20240216, end: 20240216
  58. LEUCOGEN [Concomitant]
     Active Substance: LEUCOGEN
  59. BICYCLOL [Concomitant]
     Active Substance: BICYCLOL
     Route: 048
     Dates: start: 20241223, end: 20241229
  60. BICYCLOL [Concomitant]
     Active Substance: BICYCLOL
     Route: 048
     Dates: start: 20231222, end: 20231222
  61. HERBALS\DIAMMONIUM GLYCYRRHIZINATE [Concomitant]
     Active Substance: HERBALS\DIAMMONIUM GLYCYRRHIZINATE
     Route: 048
     Dates: start: 20231223, end: 20231229
  62. HERBALS\DIAMMONIUM GLYCYRRHIZINATE [Concomitant]
     Active Substance: HERBALS\DIAMMONIUM GLYCYRRHIZINATE
     Route: 048
     Dates: start: 20231223, end: 20231229
  63. GLUTATHIONE [Concomitant]
     Active Substance: GLUTATHIONE
     Route: 041
     Dates: start: 20231225, end: 20231228
  64. GLUTATHIONE [Concomitant]
     Active Substance: GLUTATHIONE
     Route: 041
     Dates: start: 20240122, end: 20240129
  65. Levofloxacin sodium chloride [Concomitant]
     Route: 041
     Dates: start: 20231225, end: 20231229
  66. MUPIROCIN [Concomitant]
     Active Substance: MUPIROCIN
     Dates: start: 20231225, end: 20231225
  67. Polysulfonic mucopolysaccharide [Concomitant]
     Dates: start: 20231226, end: 20231226
  68. PALONOSETRON HYDROCHLORIDE [Concomitant]
     Active Substance: PALONOSETRON HYDROCHLORIDE
     Route: 048
     Dates: start: 20231226, end: 20231226
  69. PALONOSETRON HYDROCHLORIDE [Concomitant]
     Active Substance: PALONOSETRON HYDROCHLORIDE
     Route: 048
     Dates: start: 20240124, end: 20240124
  70. PALONOSETRON HYDROCHLORIDE [Concomitant]
     Active Substance: PALONOSETRON HYDROCHLORIDE
     Route: 048
     Dates: start: 20240216, end: 20240216
  71. AMBROXOL HYDROCHLORIDE [Concomitant]
     Active Substance: AMBROXOL HYDROCHLORIDE
     Route: 042
     Dates: start: 20240122, end: 20240127
  72. SODIUM CHLORIDE [Concomitant]
     Active Substance: SODIUM CHLORIDE
     Dates: start: 20240123, end: 20240127
  73. SODIUM CHLORIDE [Concomitant]
     Active Substance: SODIUM CHLORIDE
     Dates: start: 20240123, end: 20240127
  74. ISOSORBIDE MONONITRATE [Concomitant]
     Active Substance: ISOSORBIDE MONONITRATE
  75. Insulin aspartate injection [Concomitant]
  76. Human blood albumin [Concomitant]
  77. INSULIN HUMAN [Concomitant]
     Active Substance: INSULIN HUMAN
  78. PREDNISONE ACETATE [Concomitant]
     Active Substance: PREDNISONE ACETATE

REACTIONS (16)
  - Hyperuricaemia [Recovered/Resolved]
  - Hypophosphataemia [Recovered/Resolved]
  - Anaemia [Not Recovered/Not Resolved]
  - Lymphocyte count decreased [Recovered/Resolved]
  - Hypocalcaemia [Not Recovered/Not Resolved]
  - C-reactive protein increased [Not Recovered/Not Resolved]
  - Aspartate aminotransferase increased [Recovered/Resolved]
  - Platelet count decreased [Not Recovered/Not Resolved]
  - Electrocardiogram ST segment elevation [Recovered/Resolved]
  - Hypophosphataemia [Recovered/Resolved]
  - Hypokalaemia [Recovered/Resolved]
  - Hypomagnesaemia [Not Recovered/Not Resolved]
  - Alanine aminotransferase [Not Recovered/Not Resolved]
  - Neutrophil count decreased [Recovering/Resolving]
  - Sinus tachycardia [Not Recovered/Not Resolved]
  - White blood cell count decreased [Not Recovered/Not Resolved]

NARRATIVE: CASE EVENT DATE: 20231227
